FAERS Safety Report 7548717-4 (Version None)
Quarter: 2011Q2

REPORT INFORMATION
  Report Type: 
  Country: None (occurrence: None)
  Receive Date: 20110608
  Receipt Date: 20110531
  Transmission Date: 20111010
  Serious: Yes (Death, Hospitalization)
  Sender: FDA-Public Use
  Company Number: 2011001750

PATIENT
  Age: 50 Year
  Sex: Female

DRUGS (1)
  1. TARCEVA [Suspect]
     Indication: LUNG NEOPLASM MALIGNANT
     Dosage: 150 MG, UID/QD, ORAL
     Route: 048
     Dates: start: 20101230

REACTIONS (1)
  - METASTASES TO CENTRAL NERVOUS SYSTEM [None]
